FAERS Safety Report 5057482-4 (Version None)
Quarter: 2006Q3

REPORT INFORMATION
  Report Type: 
  Country: None (occurrence: None)
  Receive Date: 20060721
  Receipt Date: 20051019
  Transmission Date: 20061208
  Serious: No
  Sender: FDA-Public Use
  Company Number: US-GLAXOSMITHKLINE-A0578797A

PATIENT
  Age: 40 Year
  Sex: Female

DRUGS (5)
  1. AVANDIA [Suspect]
     Dosage: 4MG PER DAY
     Route: 048
     Dates: start: 20051018
  2. NEURONTIN [Concomitant]
  3. CELEBREX [Concomitant]
  4. DARVOCET [Concomitant]
  5. IBUPROFEN [Concomitant]

REACTIONS (1)
  - SOMNOLENCE [None]
